FAERS Safety Report 10158117 (Version 1)
Quarter: 2014Q2

REPORT INFORMATION
  Report Type: Spontaneous
  Country: CN (occurrence: CN)
  Receive Date: 20140507
  Receipt Date: 20140507
  Transmission Date: 20141212
  Serious: Yes (Death)
  Sender: FDA-Public Use
  Company Number: CN-WATSON-2014-09226

PATIENT
  Age: 52 Year
  Sex: Female

DRUGS (3)
  1. METHYLPREDNISOLONE (UNKNOWN) [Suspect]
     Indication: AVIAN INFLUENZA
     Dosage: 80 MG, DAILY
     Route: 065
  2. OSELTAMIVIR [Concomitant]
     Indication: AVIAN INFLUENZA
     Dosage: UNKNOWN
     Route: 065
  3. MOXIFLOXACIN [Concomitant]
     Indication: AVIAN INFLUENZA
     Dosage: UNKNOWN
     Route: 065

REACTIONS (2)
  - Avian influenza [Fatal]
  - Condition aggravated [Fatal]
